FAERS Safety Report 24063123 (Version 1)
Quarter: 2024Q3

REPORT INFORMATION
  Report Type: Spontaneous
  Country: NL (occurrence: NL)
  Receive Date: 20240709
  Receipt Date: 20240709
  Transmission Date: 20241016
  Serious: Yes (Death, Other)
  Sender: MEDEXUS PHARMA
  Company Number: NL-MEDEXUS PHARMA, INC.-2024MED00297

PATIENT
  Age: 53 Year
  Sex: Female

DRUGS (1)
  1. METHOTREXATE [Suspect]
     Active Substance: METHOTREXATE
     Indication: Psoriasis
     Dosage: 10 MG, 1X/DAY

REACTIONS (5)
  - Toxic shock syndrome [Fatal]
  - Epidermal necrosis [Fatal]
  - Pancytopenia [Unknown]
  - Hepatic failure [Unknown]
  - Acute kidney injury [Unknown]
